FAERS Safety Report 10173692 (Version 1)
Quarter: 2014Q2

REPORT INFORMATION
  Report Type: Spontaneous
  Country: FR (occurrence: FR)
  Receive Date: 20140515
  Receipt Date: 20140515
  Transmission Date: 20141212
  Serious: Yes (Hospitalization)
  Sender: FDA-Public Use
  Company Number: FR-PFIZER INC-2014130335

PATIENT
  Age: 92 Year
  Sex: Male

DRUGS (8)
  1. SOLU-MEDROL [Suspect]
     Indication: MYELITIS
     Dosage: 1 G, 1X/DAY
     Dates: start: 20140304, end: 20140308
  2. AMLODIPINE [Concomitant]
  3. JANUVIA [Concomitant]
     Dosage: 100 MG, UNK
  4. INEXIUM /01479302/ [Concomitant]
     Dosage: 20 MG, UNK
  5. COAPROVEL [Concomitant]
  6. LOVENOX [Concomitant]
     Dosage: 4000 IU ANTI XA/ 0.4 ML
  7. TADENAN [Concomitant]
  8. KARDEGIC [Concomitant]
     Dosage: 75 MG, UNK

REACTIONS (3)
  - Renal failure acute [Recovered/Resolved]
  - Normochromic normocytic anaemia [Recovering/Resolving]
  - Hypokalaemia [Recovered/Resolved]
